FAERS Safety Report 5509722-2 (Version None)
Quarter: 2007Q4

REPORT INFORMATION
  Report Type: 
  Country: None (occurrence: None)
  Receive Date: 20071108
  Receipt Date: 20071105
  Transmission Date: 20080405
  Serious: Yes (Other)
  Sender: FDA-Public Use
  Company Number: BR-ELI_LILLY_AND_COMPANY-BR200711001125

PATIENT
  Age: 78 Year
  Sex: Female

DRUGS (2)
  1. ZYPREXA [Suspect]
     Indication: DEMENTIA ALZHEIMER'S TYPE
     Dosage: 10 MG, DAILY (1/D)
     Route: 048
  2. FRONTAL [Concomitant]
     Dosage: UNK, UNKNOWN
     Route: 065

REACTIONS (4)
  - AGITATION [None]
  - DIZZINESS [None]
  - FALL [None]
  - HAEMATOMA [None]
